FAERS Safety Report 14783831 (Version 5)
Quarter: 2022Q2

REPORT INFORMATION
  Report Type: Spontaneous
  Country: US (occurrence: None)
  Receive Date: 20180420
  Receipt Date: 20220419
  Transmission Date: 20220721
  Serious: Yes (Other)
  Sender: FDA-Public Use
  Company Number: 2018SE48831

PATIENT
  Age: 20052 Day
  Sex: Male
  Weight: 86.2 kg

DRUGS (61)
  1. NEXIUM [Suspect]
     Active Substance: ESOMEPRAZOLE MAGNESIUM
     Route: 048
     Dates: start: 200201, end: 201612
  2. NEXIUM 24HR [Suspect]
     Active Substance: ESOMEPRAZOLE MAGNESIUM
     Route: 048
     Dates: start: 200201, end: 201612
  3. PRILOSEC [Suspect]
     Active Substance: OMEPRAZOLE MAGNESIUM
     Indication: Gastrooesophageal reflux disease
     Route: 048
     Dates: start: 200201, end: 201612
  4. PRILOSEC [Suspect]
     Active Substance: OMEPRAZOLE MAGNESIUM
     Indication: Gastrooesophageal reflux disease
     Route: 048
     Dates: start: 20130521, end: 20170113
  5. PRILOSEC [Suspect]
     Active Substance: OMEPRAZOLE MAGNESIUM
     Indication: Gastrooesophageal reflux disease
     Route: 048
     Dates: start: 20130101, end: 20161231
  6. PRILOSEC [Suspect]
     Active Substance: OMEPRAZOLE MAGNESIUM
     Indication: Gastrooesophageal reflux disease
     Dosage: GENERIC
     Route: 065
     Dates: start: 20110615, end: 20160706
  7. PRILOSEC [Suspect]
     Active Substance: OMEPRAZOLE MAGNESIUM
     Indication: Gastrooesophageal reflux disease
     Route: 048
     Dates: start: 20120101, end: 20161231
  8. PRILOSEC [Suspect]
     Active Substance: OMEPRAZOLE MAGNESIUM
     Indication: Gastrooesophageal reflux disease
     Route: 048
     Dates: start: 20140604
  9. PRILOSEC OTC [Suspect]
     Active Substance: OMEPRAZOLE MAGNESIUM
     Route: 048
     Dates: start: 200201, end: 201612
  10. PRILOSEC OTC [Suspect]
     Active Substance: OMEPRAZOLE MAGNESIUM
     Route: 048
     Dates: start: 20120101, end: 20161231
  11. DEXILANT [Suspect]
     Active Substance: DEXLANSOPRAZOLE
     Route: 065
     Dates: start: 200201, end: 201612
  12. PREVACID [Suspect]
     Active Substance: LANSOPRAZOLE
     Route: 048
     Dates: start: 200201, end: 201612
  13. PREVACID 24 HR [Suspect]
     Active Substance: LANSOPRAZOLE
     Route: 048
     Dates: start: 200201, end: 201612
  14. PROTONIX [Suspect]
     Active Substance: PANTOPRAZOLE SODIUM
     Route: 065
     Dates: start: 200201, end: 201612
  15. FAMOTIDINE [Concomitant]
     Active Substance: FAMOTIDINE
  16. ALBUTEROL\IPRATROPIUM [Concomitant]
     Active Substance: ALBUTEROL\IPRATROPIUM
  17. AZITHROMYCIN [Concomitant]
     Active Substance: AZITHROMYCIN
  18. IBUPROFEN [Concomitant]
     Active Substance: IBUPROFEN
  19. CYCLOBENZAPRINE [Concomitant]
     Active Substance: CYCLOBENZAPRINE
  20. RANITIDINE [Concomitant]
     Active Substance: RANITIDINE
  21. MELOXICAM [Concomitant]
     Active Substance: MELOXICAM
  22. METHOCARBAMOL [Concomitant]
     Active Substance: METHOCARBAMOL
  23. GABAPENTIN [Concomitant]
     Active Substance: GABAPENTIN
  24. CLONAZEPAM [Concomitant]
     Active Substance: CLONAZEPAM
  25. PAROXETINE [Concomitant]
     Active Substance: PAROXETINE
  26. TRAZODONE [Concomitant]
     Active Substance: TRAZODONE HYDROCHLORIDE
  27. ATORVASTATIN [Concomitant]
     Active Substance: ATORVASTATIN
  28. NICOTINE [Concomitant]
     Active Substance: NICOTINE
  29. PREDNISONE [Concomitant]
     Active Substance: PREDNISONE
  30. METHADONE [Concomitant]
     Active Substance: METHADONE HYDROCHLORIDE
  31. CLOTRIMAZOLE [Concomitant]
     Active Substance: CLOTRIMAZOLE
  32. FLUCONAZOLE [Concomitant]
     Active Substance: FLUCONAZOLE
  33. MESNA [Concomitant]
     Active Substance: MESNA
  34. WARFARIN [Concomitant]
     Active Substance: WARFARIN
  35. PRAVASTATIN [Concomitant]
     Active Substance: PRAVASTATIN
  36. PERCOCET [Concomitant]
     Active Substance: ACETAMINOPHEN\OXYCODONE HYDROCHLORIDE
  37. AZATHIOPRINE [Concomitant]
     Active Substance: AZATHIOPRINE
  38. ENOXAPARIN [Concomitant]
     Active Substance: ENOXAPARIN
  39. DULOXETINE [Concomitant]
     Active Substance: DULOXETINE
  40. ZOLPIDEM [Concomitant]
     Active Substance: ZOLPIDEM TARTRATE
  41. LIDOCAINE [Concomitant]
     Active Substance: LIDOCAINE
  42. NORTRIPTYLINE [Concomitant]
     Active Substance: NORTRIPTYLINE
  43. VENLAFAXINE [Concomitant]
     Active Substance: VENLAFAXINE HYDROCHLORIDE
  44. ACETAMINOPHEN [Concomitant]
     Active Substance: ACETAMINOPHEN
  45. METHYLPREDNISOLONE [Concomitant]
     Active Substance: METHYLPREDNISOLONE
  46. RITUXAN [Concomitant]
     Active Substance: RITUXIMAB
  47. PHENYLEPHRINE [Concomitant]
     Active Substance: PHENYLEPHRINE HYDROCHLORIDE
  48. PROMETHAZINE [Concomitant]
     Active Substance: PROMETHAZINE HYDROCHLORIDE
  49. DOLOPHINE [Concomitant]
     Active Substance: METHADONE HYDROCHLORIDE
  50. CYCLOBENZAPRINE [Concomitant]
     Active Substance: CYCLOBENZAPRINE
  51. FOLIC ACID [Concomitant]
     Active Substance: FOLIC ACID
  52. SODIUM CHLORIDE [Concomitant]
     Active Substance: SODIUM CHLORIDE
  53. BENADRYL [Concomitant]
     Active Substance: DIPHENHYDRAMINE HYDROCHLORIDE
  54. DEMEROL [Concomitant]
     Active Substance: MEPERIDINE HYDROCHLORIDE
  55. CLONIDINE [Concomitant]
     Active Substance: CLONIDINE
  56. PHENERGAN [Concomitant]
     Active Substance: PROMETHAZINE HYDROCHLORIDE
  57. CODEINE [Concomitant]
     Active Substance: CODEINE
  58. PROAIR HFA [Concomitant]
     Active Substance: ALBUTEROL SULFATE
  59. NEOMYCIN/PRAMOCAINE HYDROCHLORIDE/POLYMYXIN B SULFATE [Concomitant]
  60. NORTRIPTYLINE [Concomitant]
     Active Substance: NORTRIPTYLINE
  61. MORPHINE [Concomitant]
     Active Substance: MORPHINE

REACTIONS (5)
  - Chronic kidney disease [Not Recovered/Not Resolved]
  - Renal injury [Unknown]
  - Nephritic syndrome [Unknown]
  - Tubulointerstitial nephritis [Not Recovered/Not Resolved]
  - Nephrogenic anaemia [Unknown]

NARRATIVE: CASE EVENT DATE: 20140618
